FAERS Safety Report 4687765-9 (Version None)
Quarter: 2005Q2

REPORT INFORMATION
  Report Type: 
  Country: None (occurrence: None)
  Receive Date: 20050610
  Receipt Date: 20050310
  Transmission Date: 20051028
  Serious: Yes (Hospitalization, Other)
  Sender: FDA-Public Use
  Company Number: US-MERCK-0503USA01901

PATIENT
  Age: 62 Year
  Sex: Male
  Weight: 91 kg

DRUGS (4)
  1. VIOXX [Suspect]
     Indication: ARTHRITIS
     Route: 048
     Dates: start: 19990101, end: 20040901
  2. VIOXX [Suspect]
     Route: 048
     Dates: start: 20021231
  3. HYDROCODONE BITARTRATE [Concomitant]
     Route: 065
     Dates: start: 19980101
  4. NAPROSYN [Concomitant]
     Route: 065
     Dates: start: 19980101

REACTIONS (14)
  - AMAUROSIS FUGAX [None]
  - CAROTID ARTERY STENOSIS [None]
  - CEREBROVASCULAR ACCIDENT [None]
  - CONTUSION [None]
  - EMOTIONAL DISTRESS [None]
  - HEADACHE [None]
  - HYPERTENSION [None]
  - JOINT SPRAIN [None]
  - MACULAR DEGENERATION [None]
  - POLYCYTHAEMIA [None]
  - RETINAL ARTERY OCCLUSION [None]
  - ROTATOR CUFF SYNDROME [None]
  - SKIN CANCER [None]
  - TRANSIENT ISCHAEMIC ATTACK [None]
